FAERS Safety Report 25149588 (Version 1)
Quarter: 2025Q2

REPORT INFORMATION
  Report Type: Spontaneous
  Country: US (occurrence: None)
  Receive Date: 20250401
  Receipt Date: 20250401
  Transmission Date: 20250717
  Serious: Yes (Death)
  Sender: FDA-CTU
  Company Number: None

PATIENT
  Sex: Male

DRUGS (11)
  1. LENALIDOMIDE [Suspect]
     Active Substance: LENALIDOMIDE
     Indication: Plasma cell myeloma
     Dosage: FREQUENCY : DAILY;?
     Route: 048
     Dates: start: 20220528
  2. CHLORPROMAZ TAB 25MG [Concomitant]
  3. COUMADIN TAB 2.5MG [Concomitant]
  4. FLOMAX [Concomitant]
     Active Substance: TAMSULOSIN HYDROCHLORIDE
  5. KLOR-CON 10 TAB 10MEQ ER [Concomitant]
  6. LISINOPRIL [Concomitant]
     Active Substance: LISINOPRIL
  7. LORAZEPAM TAB 0.5MG [Concomitant]
  8. PRILOSEC CAP 20MG [Concomitant]
  9. SODIUM POW Bl CARBON [Concomitant]
  10. STOOL SOFTNR CAP 1 00MG [Concomitant]
  11. TUMS ULTRA CHW 1000MG [Concomitant]

REACTIONS (1)
  - Death [None]
